FAERS Safety Report 5749125-9 (Version None)
Quarter: 2008Q2

REPORT INFORMATION
  Report Type: 
  Country: None (occurrence: None)
  Receive Date: 20080522
  Receipt Date: 20080514
  Transmission Date: 20081010
  Serious: Yes (Hospitalization)
  Sender: FDA-Public Use
  Company Number: FRP08000271

PATIENT
  Age: 70 Year
  Sex: Male

DRUGS (2)
  1. ACTONEL [Suspect]
     Indication: OSTEOPOROSIS
     Dosage: ORAL
     Route: 048
  2. ISOPTIN [Suspect]
     Dosage: 240 MG, DAILY, ORAL
     Route: 048

REACTIONS (1)
  - OESOPHAGEAL STENOSIS [None]
